FAERS Safety Report 16584615 (Version 2)
Quarter: 2019Q3

REPORT INFORMATION
  Report Type: Report from Study
  Country: US (occurrence: US)
  Receive Date: 20190717
  Receipt Date: 20190730
  Transmission Date: 20191004
  Serious: Yes (Other)
  Sender: FDA-Public Use
  Company Number: US-UCBSA-2019000762

PATIENT
  Age: 28 Year
  Sex: Female
  Weight: 57 kg

DRUGS (2)
  1. CERTOLIZUMAB PEGOL [Suspect]
     Active Substance: CERTOLIZUMAB PEGOL
     Indication: RHEUMATOID ARTHRITIS
     Dosage: 400 MG, EV 2 WEEKS(QOW)
     Dates: start: 20181219
  2. CERTOLIZUMAB PEGOL [Suspect]
     Active Substance: CERTOLIZUMAB PEGOL
     Dosage: 200 MG, EV 2 WEEKS(QOW)
     Dates: start: 2019, end: 20190424

REACTIONS (8)
  - Injection site pain [Recovered/Resolved]
  - Fatigue [Not Recovered/Not Resolved]
  - Muscular weakness [Recovered/Resolved]
  - Slow speech [Not Recovered/Not Resolved]
  - Therapeutic response unexpected [Unknown]
  - Feeling abnormal [Not Recovered/Not Resolved]
  - Muscle spasms [Recovered/Resolved]
  - Pain in extremity [Recovered/Resolved]

NARRATIVE: CASE EVENT DATE: 20181219
